FAERS Safety Report 10187229 (Version 2)
Quarter: 2014Q2

REPORT INFORMATION
  Report Type: Spontaneous
  Country: FR (occurrence: FR)
  Receive Date: 20140522
  Receipt Date: 20140522
  Transmission Date: 20141212
  Serious: Yes (Hospitalization, Other)
  Sender: FDA-Public Use
  Company Number: PHHY2014FR030382

PATIENT
  Age: 56 Year
  Sex: Female
  Weight: 79 kg

DRUGS (14)
  1. ZOMETA [Suspect]
     Indication: BREAST CANCER
     Dosage: 4 MG, MONTHLY
     Route: 042
  2. ZOMETA [Suspect]
     Indication: METASTASES TO BONE
     Dosage: UNK UKN, UNK
     Route: 042
     Dates: start: 20140220
  3. OXYCODONE [Concomitant]
     Indication: ABDOMINAL PAIN
     Dosage: UNK UKN, UNK
     Route: 042
     Dates: start: 201402
  4. OXYCODONE [Concomitant]
     Dosage: UNK UKN, UNK
     Route: 048
  5. MEDROL [Concomitant]
     Indication: NEOPLASM MALIGNANT
     Dosage: 100 MG, QD
     Route: 048
     Dates: start: 201402
  6. LEVOTHYROX [Concomitant]
     Indication: THYROIDECTOMY
     Dosage: 75 UG, QD
     Route: 048
  7. ATARAX [Concomitant]
     Indication: ANXIETY
     Dosage: 25 MG, QD
     Route: 048
     Dates: start: 201402
  8. CALCIT [Concomitant]
     Indication: SUPPLEMENTATION THERAPY
     Dosage: 1000 MG, QD
     Dates: end: 20140317
  9. CALCIT [Concomitant]
     Dosage: 3 G, QD
     Dates: start: 20140317
  10. XELODA [Concomitant]
     Indication: BREAST CANCER
     Dosage: UNK UKN, UNK
  11. XELODA [Concomitant]
     Indication: METASTASES TO BONE
  12. XELODA [Concomitant]
     Indication: METASTASES TO LIVER
  13. ONE ALPHA [Concomitant]
     Indication: SUPPLEMENTATION THERAPY
     Dosage: 1 UG, BID
     Dates: end: 20140317
  14. ONE ALPHA [Concomitant]
     Dosage: 3 UG, UNK
     Dates: start: 20140317

REACTIONS (8)
  - Hypocalcaemia [Recovering/Resolving]
  - Tetany [Recovering/Resolving]
  - Tachycardia [Unknown]
  - Anxiety [Unknown]
  - Paraesthesia [Unknown]
  - Muscle spasms [Unknown]
  - General physical health deterioration [Unknown]
  - Back pain [Unknown]
